FAERS Safety Report 12276502 (Version 1)
Quarter: 2016Q2

REPORT INFORMATION
  Report Type: Spontaneous
  Country: US (occurrence: None)
  Receive Date: 20160415
  Receipt Date: 20160415
  Transmission Date: 20160815
  Serious: Yes (Other)
  Sender: FDA-Public Use
  Company Number: None

PATIENT
  Age: 69 Year
  Sex: Female

DRUGS (17)
  1. LIPITOR [Concomitant]
     Active Substance: ATORVASTATIN CALCIUM
  2. ASPIRIN (ECOTRIN LOW STRENGTH) [Concomitant]
  3. LIORESAL [Concomitant]
     Active Substance: BACLOFEN
  4. MODAFINIL (PROVIGIL) [Concomitant]
  5. NORVASC [Concomitant]
     Active Substance: AMLODIPINE BESYLATE
  6. BECLOMATHASONE DIPROPIONATE (QVAR) [Concomitant]
  7. ESTROGENS CONJUGATED (PREMARIN) [Concomitant]
  8. OXYBUTYNIN (DITROPAN XL) [Concomitant]
  9. MOBIC [Concomitant]
     Active Substance: MELOXICAM
  10. DIAZEPAM (VALIUM) [Concomitant]
  11. AMPYRA [Suspect]
     Active Substance: DALFAMPRIDINE
     Indication: MULTIPLE SCLEROSIS
     Route: 048
     Dates: start: 201006
  12. HUMULIN N KWIKPEN [Concomitant]
  13. NORCO [Concomitant]
     Active Substance: ACETAMINOPHEN\HYDROCODONE BITARTRATE
  14. LISINOPRIL (PRINIVIL/ZESTRIL) [Concomitant]
  15. CASONE (FLONASE) [Concomitant]
  16. INSULIN LISPRO (HUMALOG KWIKPEN) [Concomitant]
  17. DOCOSAHEXANOIC ACID/EPA (FISH OIL ORAL) [Concomitant]

REACTIONS (1)
  - Laboratory test abnormal [None]

NARRATIVE: CASE EVENT DATE: 20160322
